FAERS Safety Report 18725283 (Version 1)
Quarter: 2021Q1

REPORT INFORMATION
  Report Type: Report from Study
  Country: MY (occurrence: MY)
  Receive Date: 20210111
  Receipt Date: 20210111
  Transmission Date: 20210419
  Serious: Yes (Death, Other)
  Sender: FDA-Public Use
  Company Number: PHHY2018MY049782

PATIENT
  Age: 72 Year
  Sex: Female

DRUGS (4)
  1. GLIVEC [Suspect]
     Active Substance: IMATINIB MESYLATE
     Dosage: 400 MG, QD
     Route: 048
     Dates: start: 201803
  2. GLIVEC [Suspect]
     Active Substance: IMATINIB MESYLATE
     Dosage: 200 MG, QD
     Route: 048
     Dates: start: 200907
  3. GLIVEC [Suspect]
     Active Substance: IMATINIB MESYLATE
     Indication: GASTROINTESTINAL STROMAL TUMOUR
     Dosage: 400 MG, QD
     Route: 048
     Dates: start: 200808
  4. GLIVEC [Suspect]
     Active Substance: IMATINIB MESYLATE
     Dosage: 200 MG, QD
     Route: 048

REACTIONS (9)
  - Metastases to abdominal wall [Unknown]
  - Abdominal distension [Unknown]
  - Nausea [Recovering/Resolving]
  - Drug-induced liver injury [Unknown]
  - Decreased appetite [Recovering/Resolving]
  - Metastases to liver [Unknown]
  - Vomiting [Recovering/Resolving]
  - Death [Fatal]
  - Drug intolerance [Unknown]

NARRATIVE: CASE EVENT DATE: 201610
